FAERS Safety Report 10590811 (Version 3)
Quarter: 2014Q4

REPORT INFORMATION
  Report Type: Spontaneous
  Country: CA (occurrence: CA)
  Receive Date: 20141118
  Receipt Date: 20141202
  Transmission Date: 20150529
  Serious: Yes (Hospitalization, Other)
  Sender: FDA-Public Use
  Company Number: CA-GSKJP-KK201215494GSK1550188SC003

PATIENT
  Age: 76 Year
  Sex: Female
  Weight: 39 kg

DRUGS (4)
  1. BENLYSTA [Suspect]
     Active Substance: BELIMUMAB
     Indication: SYSTEMIC LUPUS ERYTHEMATOSUS
     Dosage: FREQUENCY WKS 0, 2, 4 THEN EVERY 4 WKS
     Route: 042
     Dates: start: 20120503
  2. AZATHIOPRINE. [Concomitant]
     Active Substance: AZATHIOPRINE
  3. PREDNISONE. [Concomitant]
     Active Substance: PREDNISONE
  4. BENLYSTA [Suspect]
     Active Substance: BELIMUMAB
     Dates: start: 20120503

REACTIONS (10)
  - Skin cancer [Unknown]
  - Basal cell carcinoma [Unknown]
  - Cytopenia [Unknown]
  - Balance disorder [Unknown]
  - Hip arthroplasty [Recovered/Resolved]
  - Cataract operation [Unknown]
  - Contusion [Unknown]
  - Neuralgia [Unknown]
  - Cyst [Recovering/Resolving]
  - Wrong technique in drug usage process [Unknown]

NARRATIVE: CASE EVENT DATE: 20120910
